FAERS Safety Report 5683507-9 (Version None)
Quarter: 2008Q1

REPORT INFORMATION
  Report Type: 
  Country: None (occurrence: None)
  Receive Date: 20080326
  Receipt Date: 20080314
  Transmission Date: 20080703
  Serious: Yes (Hospitalization)
  Sender: FDA-Public Use
  Company Number: 2007BI018108

PATIENT
  Age: 53 Year
  Sex: Female

DRUGS (10)
  1. AVONEX [Suspect]
     Indication: MULTIPLE SCLEROSIS
     Dosage: 30 UG; QW; IM
     Route: 030
     Dates: start: 20040430
  2. LEVOTHYROXINE SODIUM [Concomitant]
  3. ASPIRIN [Concomitant]
  4. MULTI-VITAMIN [Concomitant]
  5. IRON [Concomitant]
  6. LEXAPRO [Concomitant]
  7. MELOXICAM [Concomitant]
  8. CITRACEL [Concomitant]
  9. SIMVASTATIN [Concomitant]
  10. NOVOLOG INSULIN PUMP [Concomitant]

REACTIONS (3)
  - DIABETIC KETOACIDOSIS [None]
  - EYE OPERATION [None]
  - MYOCARDIAL INFARCTION [None]
